FAERS Safety Report 9918089 (Version 1)
Quarter: 2014Q1

REPORT INFORMATION
  Report Type: Spontaneous
  Country: US (occurrence: US)
  Receive Date: 20140223
  Receipt Date: 20140223
  Transmission Date: 20141002
  Serious: No
  Sender: FDA-Public Use
  Company Number: US-ALLERGAN-1317727US

PATIENT
  Sex: Male

DRUGS (1)
  1. TAZORAC [Suspect]
     Indication: PRODUCT USED FOR UNKNOWN INDICATION
     Dosage: UNK, ONCE AT NIGHT

REACTIONS (2)
  - Abdominal pain [Unknown]
  - Frequent bowel movements [Unknown]
